FAERS Safety Report 9209749 (Version 3)
Quarter: 2013Q4

REPORT INFORMATION
  Report Type: Spontaneous
  Country: FR (occurrence: FR)
  Receive Date: 20130404
  Receipt Date: 20131028
  Transmission Date: 20140711
  Serious: Yes (Hospitalization, Other)
  Sender: FDA-Public Use
  Company Number: FR-PFIZER INC-2013102544

PATIENT
  Age: 63 Year
  Sex: Male

DRUGS (6)
  1. TAHOR [Suspect]
     Indication: ACUTE CORONARY SYNDROME
     Dosage: 40 MG, 1X/DAY
     Route: 048
     Dates: start: 20130220
  2. LOVENOX [Suspect]
     Indication: ACUTE CORONARY SYNDROME
     Dosage: 1 DF, 1X/DAY
     Route: 058
     Dates: start: 20130220, end: 20130223
  3. KARDEGIC [Suspect]
     Indication: ACUTE CORONARY SYNDROME
     Dosage: 75 MG, 1X/DAY
     Route: 048
     Dates: start: 20130221
  4. EFFIENT [Suspect]
     Indication: ACUTE CORONARY SYNDROME
     Dosage: 10 MG, 1X/DAY
     Route: 048
     Dates: start: 20130221, end: 20130223
  5. INEXIUM [Suspect]
     Dosage: 20 MG, 1X/DAY
     Route: 048
     Dates: start: 20130220
  6. XYZAL [Concomitant]
     Dosage: UNK
     Route: 048

REACTIONS (3)
  - Thrombocytopenia [Recovered/Resolved]
  - Hyperglobulinaemia [Unknown]
  - Myocardial infarction [Unknown]
